FAERS Safety Report 25098279 (Version 1)
Quarter: 2025Q1

REPORT INFORMATION
  Report Type: Spontaneous
  Country: US (occurrence: US)
  Receive Date: 20250320
  Receipt Date: 20250320
  Transmission Date: 20250408
  Serious: No
  Sender: GE HEALTHCARE
  Company Number: US-GE HEALTHCARE-2025CSU003284

PATIENT
  Age: 87 Year
  Sex: Female
  Weight: 104 kg

DRUGS (9)
  1. VIZAMYL [Suspect]
     Active Substance: FLUTEMETAMOL F-18
     Indication: Positron emission tomogram
     Route: 042
     Dates: start: 20250318
  2. TYMLOS [Concomitant]
     Active Substance: ABALOPARATIDE
  3. Valsatan plus [Concomitant]
  4. LEVOTHYROXINE [Concomitant]
     Active Substance: LEVOTHYROXINE
  5. CREON [Concomitant]
     Active Substance: PANCRELIPASE AMYLASE\PANCRELIPASE LIPASE\PANCRELIPASE PROTEASE
  6. FAMOTIDINE [Concomitant]
     Active Substance: FAMOTIDINE
  7. EZETIMIBE [Concomitant]
     Active Substance: EZETIMIBE
  8. SIMVASTATIN [Concomitant]
     Active Substance: SIMVASTATIN
  9. METOPROLOL [Concomitant]
     Active Substance: METOPROLOL

REACTIONS (4)
  - Hot flush [Recovered/Resolved]
  - Chest discomfort [Recovered/Resolved]
  - Chest pain [Recovered/Resolved]
  - Dizziness [Recovered/Resolved]

NARRATIVE: CASE EVENT DATE: 20250318
